FAERS Safety Report 4283681-5 (Version None)
Quarter: 2004Q1

REPORT INFORMATION
  Report Type: 
  Country: None (occurrence: None)
  Receive Date: 20040129
  Receipt Date: 20040129
  Transmission Date: 20041129
  Serious: Yes (Hospitalization)
  Sender: FDA-Public Use
  Company Number: None

PATIENT
  Age: 85 Year
  Sex: Female
  Weight: 68.5 kg

DRUGS (11)
  1. WARFARIN SODIUM [Suspect]
     Indication: ATRIAL FIBRILLATION
     Dosage: 6 MG QD
  2. METFORMIN HCL [Concomitant]
  3. GLIPIZIDE [Concomitant]
  4. SOTALOL HCL [Concomitant]
  5. LIPITOR [Concomitant]
  6. COZAAR [Concomitant]
  7. NORVASC [Concomitant]
  8. TOPROL 50 XL [Concomitant]
  9. LEVOXYL [Concomitant]
  10. VIOXX [Concomitant]
  11. TRIAMTERENE AND HYDROCHLOROTHIAZIDE [Concomitant]

REACTIONS (5)
  - FAECAL OCCULT BLOOD POSITIVE [None]
  - HAEMATOCRIT DECREASED [None]
  - HAEMOGLOBIN DECREASED [None]
  - INTERNATIONAL NORMALISED RATIO INCREASED [None]
  - PNEUMONIA [None]
